FAERS Safety Report 6128122-8 (Version None)
Quarter: 2009Q1

REPORT INFORMATION
  Report Type: 
  Country: None (occurrence: None)
  Receive Date: 20090320
  Receipt Date: 20090320
  Transmission Date: 20090719
  Serious: Yes (Other)
  Sender: FDA-Public Use
  Company Number: None

PATIENT
  Age: 53 Year
  Sex: Male
  Weight: 53 kg

DRUGS (1)
  1. AMBIEN CR [Suspect]
     Indication: SOMNOLENCE
     Dosage: 1 NIGHTLY PO
     Route: 048
     Dates: start: 20070105, end: 20090105

REACTIONS (2)
  - ABNORMAL BEHAVIOUR [None]
  - FEELING ABNORMAL [None]
